FAERS Safety Report 7190324-X (Version None)
Quarter: 2010Q4

REPORT INFORMATION
  Report Type: 
  Country: None (occurrence: None)
  Receive Date: 20101221
  Receipt Date: 20101221
  Transmission Date: 20110411
  Serious: Yes (Life-Threatening, Hospitalization)
  Sender: FDA-Public Use
  Company Number: None

PATIENT
  Sex: Male
  Weight: 111.4 kg

DRUGS (3)
  1. VALTURNA [Suspect]
     Indication: BLOOD PRESSURE INCREASED
     Dosage: 300/320 MG 1 A DAY ORAL
     Route: 048
     Dates: start: 20100101, end: 20100701
  2. VALTURNA [Suspect]
     Indication: BLOOD PRESSURE INCREASED
     Dosage: 300/320 MG 1 A DAY ORAL
     Route: 048
     Dates: start: 20100718, end: 20100722
  3. . [Concomitant]

REACTIONS (10)
  - ANAEMIA [None]
  - ANGINA UNSTABLE [None]
  - ARTHRITIS [None]
  - BRONCHITIS [None]
  - BURSITIS [None]
  - CONDITION AGGRAVATED [None]
  - DEHYDRATION [None]
  - PAIN [None]
  - PNEUMONIA [None]
  - SINUSITIS [None]
